FAERS Safety Report 6716918-0 (Version None)
Quarter: 2010Q2

REPORT INFORMATION
  Report Type: 
  Country: None (occurrence: None)
  Receive Date: 20100506
  Receipt Date: 20100506
  Transmission Date: 20101027
  Serious: Yes (Other)
  Sender: FDA-Public Use
  Company Number: None

PATIENT
  Sex: Female
  Weight: 61.2356 kg

DRUGS (3)
  1. NIASPAN [Suspect]
     Indication: BLOOD TRIGLYCERIDES INCREASED
     Dosage: 500 MG 1 X DAY 047
     Dates: start: 20100415
  2. NIASPAN [Suspect]
     Indication: HIGH DENSITY LIPOPROTEIN DECREASED
     Dosage: 500 MG 1 X DAY 047
     Dates: start: 20100415
  3. NIASPAN [Suspect]
     Indication: LOW DENSITY LIPOPROTEIN INCREASED
     Dosage: 500 MG 1 X DAY 047
     Dates: start: 20100415

REACTIONS (11)
  - BLOOD PRESSURE DECREASED [None]
  - COLD SWEAT [None]
  - FAECAL INCONTINENCE [None]
  - FALL [None]
  - HEART RATE INCREASED [None]
  - HYPERHIDROSIS [None]
  - LOSS OF CONSCIOUSNESS [None]
  - PALLOR [None]
  - RESPIRATORY DISORDER [None]
  - SNORING [None]
  - URINARY INCONTINENCE [None]
